FAERS Safety Report 9120776 (Version 1)
Quarter: 2013Q1

REPORT INFORMATION
  Report Type: Spontaneous
  Country: US (occurrence: US)
  Receive Date: 20130226
  Receipt Date: 20130226
  Transmission Date: 20140127
  Serious: Yes (Hospitalization)
  Sender: FDA-Public Use
  Company Number: US-BAYER-2013-024526

PATIENT
  Age: 83 Year
  Sex: Male
  Weight: 72.56 kg

DRUGS (4)
  1. ASPIRIN CAFFEINE [Suspect]
     Dosage: 1 DF, ONCE
     Route: 048
     Dates: start: 20130127, end: 20130127
  2. BAYER ASPIRIN REGIMEN ADULT LOW STRENGTH [Concomitant]
  3. BLOOD PRESSURE MEDICATION (NOS) [Concomitant]
  4. MULTIVITAMIN [Concomitant]

REACTIONS (1)
  - Therapeutic response unexpected [Recovered/Resolved]
